FAERS Safety Report 17766486 (Version 1)
Quarter: 2020Q2

REPORT INFORMATION
  Report Type: Spontaneous
  Country: ES (occurrence: ES)
  Receive Date: 20200511
  Receipt Date: 20200511
  Transmission Date: 20200714
  Serious: Yes (Hospitalization)
  Sender: FDA-Public Use
  Company Number: ES-PFIZER INC-2020185579

PATIENT
  Age: 58 Year
  Sex: Male

DRUGS (6)
  1. PARACETAMOL [Suspect]
     Active Substance: ACETAMINOPHEN
     Dosage: 1 G, 3X/DAY (1G EVERY 8 HOURS)
     Route: 042
     Dates: start: 20200328, end: 20200408
  2. TOCILIZUMAB. [Suspect]
     Active Substance: TOCILIZUMAB
     Indication: CORONAVIRUS INFECTION
     Dosage: 600 MG, SINGLE
     Route: 042
     Dates: start: 20200328, end: 20200328
  3. METAMIZOLE [Suspect]
     Active Substance: METAMIZOLE
     Dosage: 2 G, 4X/DAY (2 G EVERY 6 HOURS)
     Route: 042
     Dates: start: 20200328, end: 20200408
  4. AZITHROMYCIN ANHYDROUS. [Suspect]
     Active Substance: AZITHROMYCIN ANHYDROUS
     Indication: PNEUMONIA
     Dosage: 500 MG, 1X/DAY (500 MG DAY)
     Route: 048
     Dates: start: 20200327, end: 20200330
  5. AZITHROMYCIN ANHYDROUS. [Suspect]
     Active Substance: AZITHROMYCIN ANHYDROUS
     Indication: CORONAVIRUS INFECTION
  6. HYDROXYCHLOROQUINE [Suspect]
     Active Substance: HYDROXYCHLOROQUINE
     Indication: CORONAVIRUS INFECTION
     Dosage: 400 MG, 1X/DAY (400 MG/DAY)
     Route: 048
     Dates: start: 20200327, end: 20200331

REACTIONS (2)
  - Condition aggravated [Recovering/Resolving]
  - Hepatitis [Recovering/Resolving]

NARRATIVE: CASE EVENT DATE: 20200406
